FAERS Safety Report 6754014-7 (Version None)
Quarter: 2010Q2

REPORT INFORMATION
  Report Type: 
  Country: None (occurrence: None)
  Receive Date: 20100603
  Receipt Date: 20100527
  Transmission Date: 20101027
  Serious: Yes (Other)
  Sender: FDA-Public Use
  Company Number: B0657559A

PATIENT
  Age: 66 Year
  Sex: Female

DRUGS (1)
  1. ZELITREX [Suspect]
     Indication: ORAL HERPES
     Dosage: 500MG PER DAY
     Route: 048
     Dates: start: 20100519

REACTIONS (1)
  - ERYTHEMA MULTIFORME [None]
